FAERS Safety Report 14704541 (Version 1)
Quarter: 2018Q2

REPORT INFORMATION
  Report Type: Report from Study
  Country: US (occurrence: US)
  Receive Date: 20180402
  Receipt Date: 20180402
  Transmission Date: 20180711
  Serious: Yes (Other)
  Sender: FDA-Public Use
  Company Number: US-BAYER-2018-057054

PATIENT
  Age: 48 Year
  Sex: Male

DRUGS (1)
  1. NEXAVAR [Suspect]
     Active Substance: SORAFENIB
     Indication: HEPATOCELLULAR CARCINOMA
     Dosage: 200 MG, BID
     Route: 048
     Dates: start: 20180314, end: 20180316

REACTIONS (5)
  - Nausea [None]
  - Decreased appetite [None]
  - Muscular weakness [None]
  - Mouth haemorrhage [None]
  - Fatigue [None]

NARRATIVE: CASE EVENT DATE: 201803
